FAERS Safety Report 20383315 (Version 1)
Quarter: 2022Q1

REPORT INFORMATION
  Report Type: Spontaneous
  Country: FR (occurrence: FR)
  Receive Date: 20220127
  Receipt Date: 20220127
  Transmission Date: 20220423
  Serious: Yes (Hospitalization)
  Sender: FDA-Public Use
  Company Number: FR-AFSSAPS-AVMP20220006

PATIENT
  Age: 35 Year
  Sex: Female

DRUGS (3)
  1. LYRICA [Suspect]
     Active Substance: PREGABALIN
     Dosage: 900 - 1200 MG PER INTAKE SINCE NOV2011. SUICIDE ATTEMPT : 3 BLISTERS IN ONE INTAKE
     Route: 048
     Dates: start: 202111
  2. ZOLPIDEM [Suspect]
     Active Substance: ZOLPIDEM TARTRATE
     Dosage: 0.5 BLISTER PER DAY
     Route: 048
     Dates: start: 2021
  3. BROMAZEPAM [Suspect]
     Active Substance: BROMAZEPAM
     Dosage: 0.5 BOTTLE PER DAY
     Route: 048
     Dates: start: 2021

REACTIONS (5)
  - Intentional overdose [Recovered/Resolved]
  - Intentional product misuse [Recovered/Resolved]
  - Suicidal ideation [Recovered/Resolved]
  - Suicide attempt [Recovered/Resolved]
  - Anxiety [Recovered/Resolved]

NARRATIVE: CASE EVENT DATE: 20211101
